FAERS Safety Report 9418624 (Version 1)
Quarter: 2013Q3

REPORT INFORMATION
  Report Type: Spontaneous
  Country: FI (occurrence: FI)
  Receive Date: 20130725
  Receipt Date: 20130725
  Transmission Date: 20140515
  Serious: Yes (Disabling)
  Sender: FDA-Public Use
  Company Number: FI-ROCHE-1250544

PATIENT
  Age: 71 Year
  Sex: Female

DRUGS (18)
  1. MABTHERA [Suspect]
     Indication: B-CELL LYMPHOMA
     Route: 042
     Dates: start: 20120412
  2. MABTHERA [Suspect]
     Route: 042
     Dates: start: 20121026, end: 20130422
  3. SOMAC (FINLAND) [Concomitant]
     Route: 065
  4. EMCONCOR [Concomitant]
     Route: 065
  5. GALVUS [Concomitant]
     Route: 065
  6. MACROGOL [Concomitant]
     Route: 065
  7. PRIMASPAN [Concomitant]
     Route: 065
  8. IPRATROPIUM [Concomitant]
     Route: 065
  9. BEMETSON [Concomitant]
     Route: 065
  10. LAXOBERON [Concomitant]
     Route: 065
  11. PANACOD [Concomitant]
     Route: 065
  12. PARA-TABS [Concomitant]
     Route: 065
  13. PRIMPERAN (FINLAND) [Concomitant]
     Route: 065
  14. VENTOLIN [Concomitant]
     Route: 065
  15. STELLA [Concomitant]
     Route: 065
  16. SIMVASTATIN [Concomitant]
     Route: 065
  17. BENDAMUSTINE [Concomitant]
  18. VALTREX [Concomitant]
     Route: 065

REACTIONS (3)
  - Herpes zoster [Recovered/Resolved with Sequelae]
  - Herpes simplex meningoencephalitis [Recovered/Resolved with Sequelae]
  - Encephalomyelitis [Recovered/Resolved with Sequelae]
